FAERS Safety Report 7689175-9 (Version None)
Quarter: 2011Q3

REPORT INFORMATION
  Report Type: 
  Country: None (occurrence: None)
  Receive Date: 20110817
  Receipt Date: 20110812
  Transmission Date: 20111222
  Serious: Yes (Death, Congenital Anomaly)
  Sender: FDA-Public Use
  Company Number: IN-ROXANE LABORATORIES, INC.-2011-RO-01141RO

PATIENT
  Age: 1 Week
  Sex: Male

DRUGS (1)
  1. ZOLPIDEM [Suspect]
     Route: 064

REACTIONS (4)
  - MENINGOMYELOCELE [None]
  - MATERNAL DRUGS AFFECTING FOETUS [None]
  - DEATH [None]
  - CONGENITAL HYDROCEPHALUS [None]
